FAERS Safety Report 11603377 (Version 1)
Quarter: 2015Q4

REPORT INFORMATION
  Report Type: Spontaneous
  Country: US (occurrence: None)
  Receive Date: 20151005
  Receipt Date: 20151005
  Transmission Date: 20160304
  Serious: Yes (Hospitalization)
  Sender: FDA-Public Use
  Company Number: None

PATIENT
  Age: 45 Year
  Sex: Female
  Weight: 90 kg

DRUGS (1)
  1. DOXIL [Suspect]
     Active Substance: DOXORUBICIN HYDROCHLORIDE
     Dates: end: 20150910

REACTIONS (7)
  - Oropharyngeal pain [None]
  - Vomiting [None]
  - Nausea [None]
  - Headache [None]
  - Rhinorrhoea [None]
  - Klebsiella test positive [None]
  - Pyrexia [None]

NARRATIVE: CASE EVENT DATE: 20150922
